FAERS Safety Report 7996862-1 (Version None)
Quarter: 2011Q4

REPORT INFORMATION
  Report Type: 
  Country: None (occurrence: None)
  Receive Date: 20111221
  Receipt Date: 20111213
  Transmission Date: 20120403
  Serious: Yes (Hospitalization, Other)
  Sender: FDA-Public Use
  Company Number: JP-JNJFOC-20111204736

PATIENT
  Age: 5 Decade
  Sex: Male

DRUGS (8)
  1. RISPERDAL CONSTA [Suspect]
     Indication: SCHIZOPHRENIA
     Route: 030
     Dates: start: 20111202
  2. ANTICHOLINERGIC [Suspect]
     Indication: PRODUCT USED FOR UNKNOWN INDICATION
     Route: 065
  3. RISPERDAL CONSTA [Suspect]
     Route: 030
     Dates: start: 20111104, end: 20111202
  4. OLANZAPINE [Suspect]
     Indication: SCHIZOPHRENIA
     Route: 048
  5. HALOPERIDOL [Suspect]
     Indication: SCHIZOPHRENIA
     Route: 048
  6. SULTOPRIDE HYDROCHLORIDE [Concomitant]
     Indication: SCHIZOPHRENIA
     Route: 048
  7. SEROQUEL [Suspect]
     Indication: SCHIZOPHRENIA
     Route: 048
  8. UNKNOWN MEDICATION [Concomitant]
     Route: 065

REACTIONS (3)
  - SUBILEUS [None]
  - INAPPROPRIATE SCHEDULE OF DRUG ADMINISTRATION [None]
  - PYREXIA [None]
